FAERS Safety Report 24457136 (Version 2)
Quarter: 2025Q3

REPORT INFORMATION
  Report Type: Spontaneous
  Country: JP (occurrence: JP)
  Receive Date: 20241018
  Receipt Date: 20250809
  Transmission Date: 20251020
  Serious: Yes (Other)
  Sender: ALEXION PHARMACEUTICALS
  Company Number: JP-ASTRAZENECA-240079982_063010_P_1

PATIENT
  Age: 71 Year
  Sex: Male

DRUGS (27)
  1. DAPAGLIFLOZIN [Suspect]
     Active Substance: DAPAGLIFLOZIN
     Indication: Cardiac failure chronic
     Dosage: AFTER BREAKFAST
     Dates: start: 202303
  2. IVABRADINE HYDROCHLORIDE [Suspect]
     Active Substance: IVABRADINE HYDROCHLORIDE
     Dosage: AFTER BREAKFAST AND EVENING MEAL
     Dates: start: 20240410
  3. IVABRADINE HYDROCHLORIDE [Suspect]
     Active Substance: IVABRADINE HYDROCHLORIDE
     Dosage: AFTER BREAKFAST AND EVENING MEAL
     Dates: start: 20240410, end: 20240418
  4. ASPIRIN [Concomitant]
     Active Substance: ASPIRIN
     Dosage: AFTER BREAKFAST
  5. ASPIRIN [Concomitant]
     Active Substance: ASPIRIN
     Dosage: AFTER BREAKFAST
  6. ROSUVASTATIN CALCIUM [Concomitant]
     Active Substance: ROSUVASTATIN CALCIUM
     Dosage: AFTER BREAKFAST
  7. ROSUVASTATIN CALCIUM [Concomitant]
     Active Substance: ROSUVASTATIN CALCIUM
     Dosage: AFTER BREAKFAST
  8. VONOPRAZAN FUMARATE [Concomitant]
     Active Substance: VONOPRAZAN FUMARATE
     Dosage: AFTER BREAKFAST
  9. VONOPRAZAN FUMARATE [Concomitant]
     Active Substance: VONOPRAZAN FUMARATE
     Dosage: AFTER BREAKFAST
  10. EDOXABAN TOSYLATE [Concomitant]
     Active Substance: EDOXABAN TOSYLATE
     Dosage: AFTER BREAKFAST
  11. SAMSCA [Concomitant]
     Active Substance: TOLVAPTAN
     Dosage: AFTER BREAKFAST
  12. SAMSCA [Concomitant]
     Active Substance: TOLVAPTAN
     Dosage: AFTER BREAKFAST
  13. DAYVIGO [Concomitant]
     Active Substance: LEMBOREXANT
     Dosage: BEFORE BEDTIME
  14. DAYVIGO [Concomitant]
     Active Substance: LEMBOREXANT
     Dosage: BEFORE BEDTIME
  15. Pelixal [Concomitant]
     Dosage: AFTER BREAKFAST
  16. Pelixal [Concomitant]
     Dosage: AFTER BREAKFAST
  17. Pelixal [Concomitant]
     Dosage: AFTER BREAKFAST
  18. SPIRONOLACTONE [Concomitant]
     Active Substance: SPIRONOLACTONE
     Dosage: AFTER BREAKFAST
  19. AZOSEMIDE [Concomitant]
     Active Substance: AZOSEMIDE
     Dosage: AFTER BREAKFAST
  20. PIMOBENDAN [Concomitant]
     Active Substance: PIMOBENDAN
     Dosage: AFTER BREAKFAST AND EVENING MEAL
  21. AMITIZA [Concomitant]
     Active Substance: LUBIPROSTONE
     Dosage: AFTER BREAKFAST AND EVENING MEAL
  22. AMIODARONE HYDROCHLORIDE [Concomitant]
     Active Substance: AMIODARONE HYDROCHLORIDE
     Dosage: AFTER BREAKFAST AND EVENING MEAL
  23. FERRIC CITRATE ANHYDROUS [Concomitant]
     Active Substance: FERRIC CITRATE ANHYDROUS
     Dosage: AFTER BREAKFAST AND EVENING MEAL
  24. ENALAPRIL MALEATE [Concomitant]
     Active Substance: ENALAPRIL MALEATE
     Dosage: AFTER BREAKFAST
  25. IMEGLIMIN HYDROCHLORIDE [Concomitant]
     Active Substance: IMEGLIMIN HYDROCHLORIDE
     Dosage: AFTER BREAKFAST AND EVENING MEAL
  26. VILDAGLIPTIN [Concomitant]
     Active Substance: VILDAGLIPTIN
     Dosage: AFTER BREAKFAST AND EVENING MEAL
  27. MAGNESIUM OXIDE [Concomitant]
     Active Substance: MAGNESIUM OXIDE
     Dosage: AFTER BREAKFAST

REACTIONS (1)
  - Renal impairment [Recovered/Resolved]
